FAERS Safety Report 6355677-0 (Version None)
Quarter: 2009Q3

REPORT INFORMATION
  Report Type: 
  Country: None (occurrence: None)
  Receive Date: 20090910
  Receipt Date: 20090826
  Transmission Date: 20100115
  Serious: Yes (Hospitalization)
  Sender: FDA-Public Use
  Company Number: 001665

PATIENT
  Age: 80 Year
  Sex: Male

DRUGS (6)
  1. UNIKET (UNIKET) [Suspect]
     Indication: RENOVASCULAR HYPERTENSION
     Dosage: 40 MG TID ORAL
     Route: 048
     Dates: start: 20000101
  2. ENALAPRIL MALEATE [Suspect]
     Indication: RENOVASCULAR HYPERTENSION
     Dosage: 20 MG ORAL
     Route: 048
     Dates: start: 20000101
  3. ASPIRIN [Suspect]
     Indication: CARDIOVASCULAR EVENT PROPHYLAXIS
     Dosage: 10 MG ORAL
     Dates: start: 20000101
  4. NORVAS (NORVAS) [Suspect]
     Indication: RENOVASCULAR HYPERTENSION
     Dosage: 10 MG ORAL
     Route: 048
     Dates: start: 20000101
  5. SUTRIL /01036501/  (SUTRIL) [Suspect]
     Indication: RENOVASCULAR HYPERTENSION
     Dosage: 10 MG QD ORAL
     Route: 048
     Dates: start: 20000101
  6. TRANGOREX (TRANGOREX) [Suspect]
     Indication: ATRIAL FIBRILLATION
     Dosage: 200 MG 1X/5 DAYS ORAL
     Route: 048
     Dates: start: 20000101

REACTIONS (2)
  - ATRIOVENTRICULAR BLOCK COMPLETE [None]
  - DRUG INTERACTION [None]
